FAERS Safety Report 6829967-9 (Version None)
Quarter: 2010Q3

REPORT INFORMATION
  Report Type: 
  Country: None (occurrence: None)
  Receive Date: 20100711
  Receipt Date: 20100412
  Transmission Date: 20110219
  Serious: No
  Sender: FDA-Public Use
  Company Number: US-ALLERGAN-1004749US

PATIENT
  Age: 46 Year
  Sex: Female

DRUGS (2)
  1. LATISSE [Suspect]
     Indication: PRODUCT USED FOR UNKNOWN INDICATION
     Dosage: 1 GTT, QHS
     Route: 061
     Dates: start: 20100301
  2. PERMANENT EYELINER [Concomitant]

REACTIONS (2)
  - ERYTHEMA OF EYELID [None]
  - EYELIDS PRURITUS [None]
